FAERS Safety Report 10639425 (Version 1)
Quarter: 2014Q4

REPORT INFORMATION
  Report Type: Spontaneous
  Country: FR (occurrence: FR)
  Receive Date: 20141209
  Receipt Date: 20141209
  Transmission Date: 20150529
  Serious: Yes (Hospitalization)
  Sender: FDA-Public Use
  Company Number: FR-009507513-1411FRA013505

PATIENT
  Age: 66 Year
  Sex: Female

DRUGS (5)
  1. FORTZAAR 100 MG/25 MG, COMPRIM? PELLICUL? [Suspect]
     Active Substance: HYDROCHLOROTHIAZIDE\LOSARTAN POTASSIUM
     Dosage: 1 DF, QD
     Route: 048
     Dates: end: 20141005
  2. LANTUS [Concomitant]
     Active Substance: INSULIN GLARGINE
     Dosage: UNK, QAM
     Route: 058
  3. SOTALOL HYDROCHLORIDE. [Concomitant]
     Active Substance: SOTALOL HYDROCHLORIDE
     Dosage: TOTAL DAILY DOSE: 80 MG (TAKEN MORNING AND EVENING)
     Route: 048
  4. INIPOMP [Concomitant]
     Active Substance: PANTOPRAZOLE SODIUM
     Indication: GASTRIC DISORDER
     Dosage: 40 MG, QD
     Route: 048
  5. METFORMIN [Concomitant]
     Active Substance: METFORMIN HYDROCHLORIDE
     Dosage: DAILY DOSE: 2000 MG (FREQUENCY REPORTED AS 1-0-1)
     Route: 048
     Dates: end: 20141005

REACTIONS (3)
  - Hyperkalaemia [Recovered/Resolved]
  - Acute kidney injury [Recovered/Resolved with Sequelae]
  - Drug level increased [Recovered/Resolved]

NARRATIVE: CASE EVENT DATE: 20141005
